FAERS Safety Report 13504559 (Version 6)
Quarter: 2020Q3

REPORT INFORMATION
  Report Type: Spontaneous
  Country: US (occurrence: US)
  Receive Date: 20170502
  Receipt Date: 20200811
  Transmission Date: 20201102
  Serious: Yes (Death, Other)
  Sender: FDA-Public Use
  Company Number: US-IMPAX LABORATORIES, INC-2017-IPXL-00691

PATIENT
  Sex: Female
  Weight: 58 kg

DRUGS (13)
  1. RYTARY [Suspect]
     Active Substance: CARBIDOPA\LEVODOPA
     Dosage: 23.75/95MG, 3 CAPSULES 3 TIMES A DAY AND 3 CAPSULES AT BED TIME
     Route: 048
  2. FUROSEMIDE. [Concomitant]
     Active Substance: FUROSEMIDE
     Indication: BLOOD PRESSURE FLUCTUATION
     Dosage: 20 MG, UNK
     Route: 065
  3. FLUDROCORTISONE [Concomitant]
     Active Substance: FLUDROCORTISONE
     Indication: BLOOD PRESSURE FLUCTUATION
     Dosage: 0.1 MG, UNK
     Route: 065
  4. AZILECT [Concomitant]
     Active Substance: RASAGILINE MESYLATE
     Indication: PARKINSON^S DISEASE
     Dosage: UNK
     Route: 065
  5. RYTARY [Suspect]
     Active Substance: CARBIDOPA\LEVODOPA
     Dosage: 23.75/95MG, 3 CAPSULES 3 TIMES A DAY AND 4 CAPSULES AT BED TIME
     Route: 048
  6. RYTARY [Suspect]
     Active Substance: CARBIDOPA\LEVODOPA
     Indication: PARKINSON^S DISEASE
     Dosage: 23.75/95MG, 4 CAPSULE, 5 /DAY
     Route: 048
     Dates: start: 2017, end: 2017
  7. RYTARY [Suspect]
     Active Substance: CARBIDOPA\LEVODOPA
     Dosage: 23.75/95MG, 3 CAPSULE, 6 /DAY
     Route: 048
     Dates: start: 2017, end: 2017
  8. ACETAMINOPHEN. [Concomitant]
     Active Substance: ACETAMINOPHEN
     Indication: ARTHRITIS
     Dosage: 500 MG, UNK
     Route: 065
  9. RYTARY [Suspect]
     Active Substance: CARBIDOPA\LEVODOPA
     Dosage: 23.75/95MG, 4 CAPSULE, 4 TIMES DAILY
     Route: 048
     Dates: start: 2017, end: 2017
  10. RYTARY [Suspect]
     Active Substance: CARBIDOPA\LEVODOPA
     Dosage: 23.75/95MG, 3 CAPSULE, 4 TIMES DAILY
     Route: 048
     Dates: start: 201708
  11. ROPINIROLE. [Concomitant]
     Active Substance: ROPINIROLE
     Indication: PARKINSON^S DISEASE
     Dosage: 2MG AND 3MG, UNK
     Route: 065
  12. BREO ELLIPTA [Concomitant]
     Active Substance: FLUTICASONE FUROATE\VILANTEROL TRIFENATATE
     Indication: RESPIRATION ABNORMAL
     Dosage: UNK
     Route: 065
  13. VITAMINS [Concomitant]
     Active Substance: VITAMINS
     Indication: SUPPLEMENTATION THERAPY
     Dosage: UNK
     Route: 065

REACTIONS (5)
  - Myocardial infarction [Fatal]
  - Hallucination [Recovering/Resolving]
  - Dysarthria [Recovering/Resolving]
  - Adverse event [Recovering/Resolving]
  - Therapeutic product effect variable [Unknown]
